FAERS Safety Report 21496709 (Version 6)
Quarter: 2023Q2

REPORT INFORMATION
  Report Type: Report from Study
  Country: US (occurrence: US)
  Receive Date: 20221022
  Receipt Date: 20230403
  Transmission Date: 20230721
  Serious: Yes (Other)
  Sender: FDA-Public Use
  Company Number: US-002147023-NVSC2022US238601

PATIENT
  Sex: Female

DRUGS (3)
  1. KESIMPTA [Suspect]
     Active Substance: OFATUMUMAB
     Indication: Multiple sclerosis
     Dosage: UNK
     Route: 065
  2. KESIMPTA [Suspect]
     Active Substance: OFATUMUMAB
     Indication: Uveitis
  3. IMURAN [Concomitant]
     Active Substance: AZATHIOPRINE
     Indication: Uveitis
     Dosage: UNK
     Route: 065

REACTIONS (5)
  - Retinal detachment [Recovering/Resolving]
  - Malaise [Recovered/Resolved]
  - Eye inflammation [Not Recovered/Not Resolved]
  - Condition aggravated [Unknown]
  - Product use in unapproved indication [Recovering/Resolving]
